FAERS Safety Report 24900285 (Version 1)
Quarter: 2025Q1

REPORT INFORMATION
  Report Type: Spontaneous
  Country: US (occurrence: None)
  Receive Date: 20250129
  Receipt Date: 20250129
  Transmission Date: 20250409
  Serious: No
  Sender: FDA-CTU
  Company Number: None

PATIENT
  Sex: Female

DRUGS (1)
  1. TERIPARATIDE ACETATE [Suspect]
     Active Substance: TERIPARATIDE ACETATE
     Indication: Osteoporosis
     Dosage: 20MCG DAILY SUGCUTANEOUSLY
     Route: 058
     Dates: start: 202406

REACTIONS (3)
  - Fall [None]
  - Joint injury [None]
  - Muscle spasms [None]
